FAERS Safety Report 24650212 (Version 1)
Quarter: 2024Q4

REPORT INFORMATION
  Report Type: Spontaneous
  Country: GB (occurrence: GB)
  Receive Date: 20241122
  Receipt Date: 20241122
  Transmission Date: 20250115
  Serious: Yes (Other)
  Sender: TEVA
  Company Number: GB-MHRA-EMIS-3762-5ba69ec7-e116-4e3a-943b-e3af922aa1ec

PATIENT
  Age: 42 Year
  Sex: Female
  Weight: 77 kg

DRUGS (5)
  1. PROGESTERONE [Suspect]
     Active Substance: PROGESTERONE
     Route: 065
  2. TIRZEPATIDE [Suspect]
     Active Substance: TIRZEPATIDE
     Dosage: 5MG/0.6ML SOLUTION FOR INJECTION 2.4ML PRE-FILLED DISPOSABLE DEVICES, INJECT ONE 0.6 ML DOSE SUBC...
     Route: 058
  3. Lenzetto plus [Concomitant]
     Indication: Hormone replacement therapy
     Dosage: ORAL UTRAGESTON
     Route: 048
  4. AMDINOCILLIN PIVOXIL [Concomitant]
     Active Substance: AMDINOCILLIN PIVOXIL
     Dosage: TAKE TWO TABLETS INITIALLY, FOLLOWED BY ONE TABLET THREE TIMES PER DAY FOR THREE DAYS
     Dates: start: 20241016
  5. AMDINOCILLIN PIVOXIL [Concomitant]
     Active Substance: AMDINOCILLIN PIVOXIL
     Dosage: TAKE TWO TABLETS INITIALLLY, FOLLOWED BY ONE TABLET THREE TIMES PER DAY FOR THREE DAYS
     Dates: start: 20241024

REACTIONS (2)
  - Vaginal haemorrhage [Unknown]
  - Postmenopausal haemorrhage [Unknown]
